FAERS Safety Report 8563956-1 (Version None)
Quarter: 2012Q3

REPORT INFORMATION
  Report Type: 
  Country: None (occurrence: None)
  Receive Date: 20120803
  Receipt Date: 20120730
  Transmission Date: 20120928
  Serious: Yes (Other)
  Sender: FDA-Public Use
  Company Number: PHHY2012JP066529

PATIENT
  Age: 77 Year
  Sex: Female

DRUGS (2)
  1. RISEDRONATE SODIUM [Concomitant]
  2. ZOLEDRONIC ACID [Suspect]
     Dosage: UNK UKN, UNK
     Route: 041

REACTIONS (1)
  - OSTEONECROSIS OF JAW [None]
